FAERS Safety Report 11855607 (Version 1)
Quarter: 2015Q4

REPORT INFORMATION
  Report Type: Spontaneous
  Country: US (occurrence: US)
  Receive Date: 20151221
  Receipt Date: 20151221
  Transmission Date: 20160305
  Serious: No
  Sender: FDA-Public Use
  Company Number: US-PERRIGO-15US004444

PATIENT
  Age: 54 Year
  Sex: Female
  Weight: 54.42 kg

DRUGS (2)
  1. THYROID THERAPY [Concomitant]
     Active Substance: UNSPECIFIED INGREDIENT
     Indication: HYPOTHYROIDISM
     Dosage: UNK
     Route: 065
     Dates: start: 2012
  2. BACITRACIN OPHTHALMIC USP 500U/G 0S4 [Suspect]
     Active Substance: BACITRACIN
     Indication: INFLAMMATION
     Dosage: 1 THIN RIBBON TO RIGHT EYE, SINGLE
     Route: 047
     Dates: start: 20150423, end: 20150423

REACTIONS (4)
  - Eyelid oedema [Recovering/Resolving]
  - Condition aggravated [Not Recovered/Not Resolved]
  - Lacrimation increased [Not Recovered/Not Resolved]
  - Eye discharge [Not Recovered/Not Resolved]

NARRATIVE: CASE EVENT DATE: 20150423
